FAERS Safety Report 13048146 (Version 1)
Quarter: 2016Q4

REPORT INFORMATION
  Report Type: Spontaneous
  Country: RO (occurrence: RO)
  Receive Date: 20161220
  Receipt Date: 20161220
  Transmission Date: 20170207
  Serious: Yes (Hospitalization)
  Sender: FDA-Public Use
  Company Number: RO-MYLANLABS-2016M1055374

PATIENT

DRUGS (3)
  1. OMEPRAZOL ?MYLAN? [Suspect]
     Active Substance: OMEPRAZOLE
     Indication: ANTIPLATELET THERAPY
     Dosage: UNK
  2. ATORVASTATIN ?MYLAN? [Interacting]
     Active Substance: ATORVASTATIN
     Indication: DYSLIPIDAEMIA
     Dosage: UNK
  3. CLOPIDOGREL [Interacting]
     Active Substance: CLOPIDOGREL BISULFATE
     Indication: ANTIPLATELET THERAPY
     Dosage: 75 MG, QD

REACTIONS (1)
  - Drug interaction [Unknown]
